FAERS Safety Report 7361400-3 (Version None)
Quarter: 2011Q1

REPORT INFORMATION
  Report Type: 
  Country: None (occurrence: None)
  Receive Date: 20110318
  Receipt Date: 20110310
  Transmission Date: 20110831
  Serious: Yes (Hospitalization)
  Sender: FDA-Public Use
  Company Number: BR-ELI_LILLY_AND_COMPANY-BR201102007109

PATIENT
  Sex: Female
  Weight: 47 kg

DRUGS (6)
  1. ULTRACET [Concomitant]
     Indication: PAIN
     Dosage: UNK, 2/D
     Route: 048
     Dates: start: 20090101
  2. CARBIDOPA AND LEVODOPA [Concomitant]
     Indication: PARKINSON'S DISEASE
     Dosage: UNK, DAILY (1/D)
     Route: 048
     Dates: start: 20070101
  3. MANTIDAN [Concomitant]
     Indication: PARKINSON'S DISEASE
     Dosage: 100 MG, 2/D
     Route: 048
     Dates: start: 20070101
  4. ATENOLOL [Concomitant]
     Dosage: UNK, UNKNOWN
     Route: 065
  5. ANCORON [Concomitant]
     Indication: CARDIAC DISORDER
  6. FORTEO [Suspect]
     Indication: OSTEOPOROSIS
     Dosage: 20 UG, DAILY (1/D)
     Route: 058
     Dates: start: 20100701

REACTIONS (6)
  - DEHYDRATION [None]
  - BRADYCARDIA [None]
  - ASTHENIA [None]
  - PROTEIN TOTAL DECREASED [None]
  - ANAEMIA [None]
  - DYSPHONIA [None]
